FAERS Safety Report 19956240 (Version 1)
Quarter: 2021Q4

REPORT INFORMATION
  Report Type: Spontaneous
  Country: US (occurrence: US)
  Receive Date: 20211014
  Receipt Date: 20211014
  Transmission Date: 20220303
  Serious: No
  Sender: FDA-Public Use
  Company Number: US-PFIZER INC-202100922608

PATIENT
  Age: 38 Year
  Sex: Male
  Weight: 111 kg

DRUGS (1)
  1. INLYTA [Suspect]
     Active Substance: AXITINIB
     Indication: Renal cell carcinoma
     Dosage: 7 MG ((2-1MG/1-5MG EVERY 12HOURS)
     Route: 048
     Dates: start: 20210625

REACTIONS (2)
  - Blood urine present [Unknown]
  - Fatigue [Unknown]
